FAERS Safety Report 8297756 (Version 5)
Quarter: 2013Q1

REPORT INFORMATION
  Report Type: Report from Study
  Country: DE (occurrence: DE)
  Receive Date: 20111219
  Receipt Date: 20130325
  Transmission Date: 20140127
  Serious: Yes (Other)
  Sender: FDA-Public Use
  Company Number: DE-US-EMD SERONO, INC.-7100020

PATIENT
  Age: 40 Year
  Sex: Female
  Weight: 68 kg

DRUGS (7)
  1. GONAL-F [Suspect]
     Indication: IN VITRO FERTILISATION
     Route: 058
     Dates: start: 20111116, end: 20111120
  2. PERGOVERIS [Suspect]
     Indication: IN VITRO FERTILISATION
     Route: 058
     Dates: start: 20111121, end: 20111126
  3. OVITRELLE [Suspect]
     Indication: PRODUCT USED FOR UNKNOWN INDICATION
     Dates: start: 20111126, end: 20111126
  4. CRINONE [Concomitant]
     Indication: DISEASE COMPLICATION
     Route: 067
     Dates: start: 20111128, end: 20111211
  5. FOLIC ACID [Concomitant]
     Indication: PROPHYLAXIS
     Route: 048
     Dates: start: 2007
  6. EUTHYROX [Concomitant]
     Indication: PRODUCT USED FOR UNKNOWN INDICATION
     Route: 048
     Dates: start: 200803
  7. NAFARELIN ACETAT [Concomitant]
     Indication: PRODUCT USED FOR UNKNOWN INDICATION
     Route: 045
     Dates: start: 20111029, end: 20111126

REACTIONS (1)
  - Ovarian hyperstimulation syndrome [Recovered/Resolved]
